FAERS Safety Report 21795730 (Version 2)
Quarter: 2023Q1

REPORT INFORMATION
  Report Type: Report from Study
  Country: CH (occurrence: CH)
  Receive Date: 20221229
  Receipt Date: 20230102
  Transmission Date: 20230417
  Serious: Yes (Hospitalization)
  Sender: FDA-Public Use
  Company Number: CH-ABBVIE-4252291

PATIENT
  Age: 69 Year
  Sex: Male

DRUGS (6)
  1. CARBIDOPA\LEVODOPA [Suspect]
     Active Substance: CARBIDOPA\LEVODOPA
     Indication: Parkinson^s disease
     Dosage: MD: 6 ML, CRD: 2 ML/H, CRN: 0 ML/H, ED: 1 ML, 16H THERAPY
     Route: 050
     Dates: start: 20221117, end: 20221118
  2. CARBIDOPA\LEVODOPA [Suspect]
     Active Substance: CARBIDOPA\LEVODOPA
     Dosage: MD: 9 ML, CRD: 2 ML/H, CRN: 0 ML/H, ED: 1 ML, 16H THERAPY
     Route: 050
     Dates: start: 20221226, end: 20221227
  3. CARBIDOPA\LEVODOPA [Suspect]
     Active Substance: CARBIDOPA\LEVODOPA
     Dosage: MD: 6 ML, CRD: 2 ML/H, CRN: 0 ML/H, ED: 1 ML, 16H THERAPY
     Route: 050
     Dates: start: 20221115, end: 20221117
  4. CARBIDOPA\LEVODOPA [Suspect]
     Active Substance: CARBIDOPA\LEVODOPA
     Dosage: MD: 6 ML, CRD: 2 ML/H, CRN: 0 ML/H, ED: 1 ML, 16H THERAPY
     Route: 050
     Dates: start: 20221118, end: 20221221
  5. CARBIDOPA\LEVODOPA [Suspect]
     Active Substance: CARBIDOPA\LEVODOPA
     Dosage: MD: 9 ML, CRD: 2 ML/H, CRN: 0 ML/H, ED: 1 ML, 16H THERAPY
     Route: 050
     Dates: start: 20221221, end: 20221226
  6. BENSERAZIDE HYDROCHLORIDE\LEVODOPA [Concomitant]
     Active Substance: BENSERAZIDE HYDROCHLORIDE\LEVODOPA
     Indication: Parkinson^s disease
     Route: 048
     Dates: start: 20221226

REACTIONS (6)
  - Chest pain [Not Recovered/Not Resolved]
  - Restlessness [Not Recovered/Not Resolved]
  - Aptyalism [Not Recovered/Not Resolved]
  - Tongue dry [Not Recovered/Not Resolved]
  - Confusional state [Not Recovered/Not Resolved]
  - Cognitive disorder [Not Recovered/Not Resolved]

NARRATIVE: CASE EVENT DATE: 20221201
